FAERS Safety Report 7751939-0 (Version None)
Quarter: 2011Q3

REPORT INFORMATION
  Report Type: 
  Country: None (occurrence: None)
  Receive Date: 20110915
  Receipt Date: 20110906
  Transmission Date: 20111222
  Serious: Yes (Other)
  Sender: FDA-Public Use
  Company Number: US-JNJFOC-20061100884

PATIENT
  Sex: Female
  Weight: 61.92 kg

DRUGS (4)
  1. RISPERDAL [Suspect]
     Indication: BIPOLAR DISORDER
     Dates: start: 19970101, end: 20040801
  2. RISPERDAL [Suspect]
     Indication: SCHIZOPHRENIA
     Dates: start: 19970101, end: 20040801
  3. RISPERDAL [Suspect]
     Indication: DEPRESSION
     Dates: start: 19970101, end: 20040801
  4. ELAVIL [Concomitant]

REACTIONS (6)
  - NAUSEA [None]
  - DIARRHOEA [None]
  - INSULIN-REQUIRING TYPE 2 DIABETES MELLITUS [None]
  - VISION BLURRED [None]
  - CARPAL TUNNEL SYNDROME [None]
  - VOMITING [None]
